FAERS Safety Report 6032442-5 (Version None)
Quarter: 2009Q1

REPORT INFORMATION
  Report Type: 
  Country: None (occurrence: None)
  Receive Date: 20090109
  Receipt Date: 20090106
  Transmission Date: 20090719
  Serious: Yes (Hospitalization)
  Sender: FDA-Public Use
  Company Number: US-BIOGENIDEC-2008BI022909

PATIENT
  Sex: Female

DRUGS (1)
  1. AVONEX [Suspect]
     Indication: MULTIPLE SCLEROSIS
     Route: 030
     Dates: start: 20071029, end: 20080630

REACTIONS (4)
  - BRONCHIAL SECRETION RETENTION [None]
  - BRONCHITIS [None]
  - PNEUMONIA [None]
  - SINUSITIS [None]
